FAERS Safety Report 17670090 (Version 2)
Quarter: 2022Q2

REPORT INFORMATION
  Report Type: Spontaneous
  Country: US (occurrence: US)
  Receive Date: 20200415
  Receipt Date: 20220617
  Transmission Date: 20220721
  Serious: No
  Sender: FDA-Public Use
  Company Number: US-PFIZER INC-2020155347

PATIENT
  Age: 58 Year
  Sex: Male

DRUGS (2)
  1. INLYTA [Suspect]
     Active Substance: AXITINIB
     Indication: Renal cancer metastatic
     Dosage: 5 MG, 2X/DAY
  2. OPDIVO [Concomitant]
     Active Substance: NIVOLUMAB
     Indication: Renal cancer metastatic
     Route: 041

REACTIONS (2)
  - Neoplasm progression [Unknown]
  - Diarrhoea [Unknown]
